FAERS Safety Report 5285544-5 (Version None)
Quarter: 2007Q1

REPORT INFORMATION
  Report Type: 
  Country: None (occurrence: None)
  Receive Date: 20061220
  Receipt Date: 20060117
  Transmission Date: 20070707
  Serious: Yes (Hospitalization)
  Sender: FDA-Public Use
  Company Number: 432671

PATIENT
  Age: 40 Year
  Sex: Male
  Weight: 74.4 kg

DRUGS (4)
  1. TAMIFLU [Suspect]
     Indication: INFLUENZA
     Dosage: 75 MG  2 PER DAY  ORAL
     Route: 048
     Dates: start: 20051206, end: 20051209
  2. TYLENOL [Suspect]
     Indication: DRUG USE FOR UNKNOWN INDICATION
     Dosage: 2 DOSE FORM DAILY  ORAL
     Route: 048
  3. MOTRIN [Concomitant]
  4. PEPCID [Concomitant]

REACTIONS (15)
  - ATELECTASIS [None]
  - DEHYDRATION [None]
  - DISORIENTATION [None]
  - DIZZINESS [None]
  - HALLUCINATION [None]
  - HEPATITIS [None]
  - HYPERSENSITIVITY [None]
  - HYPOAESTHESIA [None]
  - MENTAL IMPAIRMENT [None]
  - PARAESTHESIA [None]
  - PLEURAL EFFUSION [None]
  - PYREXIA [None]
  - RASH [None]
  - VOMITING [None]
  - WEIGHT DECREASED [None]
